FAERS Safety Report 9139304 (Version 3)
Quarter: 2013Q2

REPORT INFORMATION
  Report Type: Report from Study
  Country: FR (occurrence: FR)
  Receive Date: 20130305
  Receipt Date: 20130606
  Transmission Date: 20140414
  Serious: Yes (Death, Hospitalization)
  Sender: FDA-Public Use
  Company Number: PHHO2013FR000701

PATIENT
  Sex: 0

DRUGS (4)
  1. AFINITOR [Suspect]
     Indication: PANCREATIC NEUROENDOCRINE TUMOUR
     Dosage: 10 MG, QD
     Route: 048
     Dates: start: 20121107, end: 20121230
  2. AFINITOR [Suspect]
     Dosage: 5 MG, QD
     Route: 048
  3. INSULIN [Concomitant]
     Indication: DIABETES MELLITUS
     Dosage: UNK
  4. LANTUS [Concomitant]
     Indication: DIABETES MELLITUS

REACTIONS (1)
  - Pulmonary embolism [Fatal]
